FAERS Safety Report 5392651-5 (Version None)
Quarter: 2007Q3

REPORT INFORMATION
  Report Type: 
  Country: None (occurrence: None)
  Receive Date: 20070720
  Receipt Date: 20070711
  Transmission Date: 20080115
  Serious: Yes (Death)
  Sender: FDA-Public Use
  Company Number: US-ABBOTT-07P-163-0356743-00

PATIENT
  Sex: Female
  Weight: 59.474 kg

DRUGS (9)
  1. HUMIRA [Suspect]
     Indication: CROHN'S DISEASE
     Route: 058
     Dates: start: 20061109, end: 20061109
  2. HUMIRA [Suspect]
     Route: 058
     Dates: start: 20061123, end: 20061123
  3. HUMIRA [Suspect]
     Route: 058
     Dates: start: 20061207, end: 20070118
  4. CIPROFLOXACIN HCL [Concomitant]
     Indication: CROHN'S DISEASE
     Dates: start: 20061005, end: 20061202
  5. CIPROFLOXACIN HCL [Concomitant]
     Dates: start: 20061203, end: 20061212
  6. FLAGYL [Concomitant]
     Indication: CROHN'S DISEASE
     Dates: start: 20061005, end: 20061120
  7. FLAGYL [Concomitant]
     Dates: start: 20061121, end: 20061202
  8. PENTASA [Concomitant]
     Indication: CROHN'S DISEASE
     Dates: start: 20060530, end: 20070121
  9. IMODIUM [Concomitant]
     Indication: DIARRHOEA
     Dates: start: 19941201, end: 20070121

REACTIONS (1)
  - DEATH [None]
